FAERS Safety Report 24055156 (Version 1)
Quarter: 2024Q3

REPORT INFORMATION
  Report Type: Spontaneous
  Country: US (occurrence: None)
  Receive Date: 20240703
  Receipt Date: 20240703
  Transmission Date: 20241017
  Serious: Yes (Life-Threatening, Hospitalization, Other)
  Sender: Public
  Company Number: None

PATIENT
  Age: 81 Year
  Sex: Female
  Weight: 66.1 kg

DRUGS (2)
  1. AMIVANTAMAB-VMJW [Suspect]
     Active Substance: AMIVANTAMAB-VMJW
     Indication: Lung adenocarcinoma
     Dosage: OTHER FREQUENCY : CYCLE 1, WEEKLY;?
     Route: 042
     Dates: start: 20240702, end: 20240702
  2. AMIVANTAMAB-VMJW [Suspect]
     Active Substance: AMIVANTAMAB-VMJW
     Indication: Non-small cell lung cancer

REACTIONS (11)
  - Dyspnoea [None]
  - Tachycardia [None]
  - Blood pressure increased [None]
  - Anxiety [None]
  - Tachypnoea [None]
  - Use of accessory respiratory muscles [None]
  - Unresponsive to stimuli [None]
  - Oxygen saturation decreased [None]
  - Acute respiratory failure [None]
  - Metabolic acidosis [None]
  - Malignant pleural effusion [None]

NARRATIVE: CASE EVENT DATE: 20240702
